FAERS Safety Report 17459310 (Version 1)
Quarter: 2020Q1

REPORT INFORMATION
  Report Type: Report from Study
  Country: CO (occurrence: CO)
  Receive Date: 20200226
  Receipt Date: 20200226
  Transmission Date: 20200409
  Serious: Yes (Hospitalization, Other)
  Sender: FDA-Public Use
  Company Number: CO-ROCHE-1359775

PATIENT
  Sex: Female

DRUGS (1)
  1. RITUXIMAB. [Suspect]
     Active Substance: RITUXIMAB
     Indication: RHEUMATOID ARTHRITIS
     Route: 042
     Dates: start: 20121220

REACTIONS (5)
  - Diarrhoea [Unknown]
  - Systemic lupus erythematosus [Unknown]
  - Immunodeficiency [Unknown]
  - Leukopenia [Unknown]
  - Basal cell carcinoma [Recovering/Resolving]
